FAERS Safety Report 18019581 (Version 1)
Quarter: 2020Q3

REPORT INFORMATION
  Report Type: Spontaneous
  Country: GB (occurrence: GB)
  Receive Date: 20200714
  Receipt Date: 20200714
  Transmission Date: 20201103
  Serious: Yes (Life-Threatening, Disabling)
  Sender: FDA-Public Use
  Company Number: GB-ACCORD-189970

PATIENT
  Age: 49 Year
  Sex: Female
  Weight: 77 kg

DRUGS (1)
  1. ISOSORBIDE. [Suspect]
     Active Substance: ISOSORBIDE
     Indication: CHEST DISCOMFORT
     Route: 048
     Dates: start: 20200625, end: 20200625

REACTIONS (11)
  - Eye pain [Unknown]
  - Headache [Not Recovered/Not Resolved]
  - Tremor [Unknown]
  - Photophobia [Unknown]
  - Haemorrhage intracranial [Unknown]
  - Intracranial pressure increased [Unknown]
  - Suspected counterfeit product [Unknown]
  - Vomiting projectile [Not Recovered/Not Resolved]
  - Tinnitus [Unknown]
  - Blood pressure decreased [Not Recovered/Not Resolved]
  - Nausea [Unknown]

NARRATIVE: CASE EVENT DATE: 20200625
